FAERS Safety Report 9087319 (Version 1)
Quarter: 2013Q1

REPORT INFORMATION
  Report Type: Report from Study
  Country: US (occurrence: US)
  Receive Date: 20130131
  Receipt Date: 20130131
  Transmission Date: 20140127
  Serious: Yes (Other)
  Sender: FDA-Public Use
  Company Number: US-ABBOTT-12P-163-0966933-00

PATIENT
  Age: 82 None
  Sex: Female

DRUGS (11)
  1. HUMIRA [Suspect]
     Indication: PSORIASIS
     Dates: start: 2006, end: 201205
  2. HUMIRA [Suspect]
     Dates: start: 20120806
  3. LISINOPRIL [Concomitant]
     Indication: HYPERTENSION
     Dosage: 20 MG DAILY
  4. SYNTHROID [Concomitant]
     Indication: HYPOTHYROIDISM
     Dosage: 0.2 MCG DAILY
  5. CELEBREX [Concomitant]
     Indication: RHEUMATOID ARTHRITIS
     Dosage: 200 MG DAILY
  6. CALCIUM 500 MG PLUS VIT D [Concomitant]
     Indication: MINERAL SUPPLEMENTATION
     Dosage: 2 TABLETS DAILY
  7. GLUCOSAMINE CHONDROITIN [Concomitant]
     Indication: RHEUMATOID ARTHRITIS
     Dosage: DAILY
  8. TRIMILOLOG [Concomitant]
     Indication: EYE DISORDER
  9. METROCREAM [Concomitant]
     Indication: PSORIASIS
  10. AMBIEN [Concomitant]
     Indication: INSOMNIA
  11. UNKNOWN CREAMS PATIENT DECLINED TO STATE [Concomitant]
     Indication: PSORIASIS

REACTIONS (10)
  - Knee arthroplasty [Not Recovered/Not Resolved]
  - Herpes zoster [Unknown]
  - Limb injury [Unknown]
  - Arterial injury [Unknown]
  - Venous injury [Unknown]
  - Psoriasis [Unknown]
  - Limb operation [Unknown]
  - Herpes zoster [Unknown]
  - Drug dose omission [Unknown]
  - Skin injury [Unknown]
